FAERS Safety Report 4934918-8 (Version None)
Quarter: 2006Q1

REPORT INFORMATION
  Report Type: 
  Country: None (occurrence: None)
  Receive Date: 20060306
  Receipt Date: 20060306
  Transmission Date: 20060701
  Serious: Yes (Hospitalization)
  Sender: FDA-Public Use
  Company Number: None

PATIENT
  Age: 55 Year
  Sex: Female
  Weight: 70.3075 kg

DRUGS (1)
  1. PERCOCET [Suspect]
     Indication: MIGRAINE
     Dosage: 2 TABS Q4H PO
     Route: 048
     Dates: start: 20050531, end: 20050603

REACTIONS (5)
  - CONFUSIONAL STATE [None]
  - DRUG ABUSER [None]
  - INAPPROPRIATE SCHEDULE OF DRUG ADMINISTRATION [None]
  - LETHARGY [None]
  - TRANSAMINASES INCREASED [None]
